FAERS Safety Report 17113545 (Version 1)
Quarter: 2019Q4

REPORT INFORMATION
  Report Type: Spontaneous
  Country: US (occurrence: US)
  Receive Date: 20191205
  Receipt Date: 20191205
  Transmission Date: 20200122
  Serious: Yes (Death, Hospitalization)
  Sender: FDA-Public Use
  Company Number: US-JNJFOC-20191203317

PATIENT
  Age: 21 Year
  Sex: Female

DRUGS (1)
  1. PARACETAMOL [Suspect]
     Active Substance: ACETAMINOPHEN
     Indication: PRODUCT USED FOR UNKNOWN INDICATION
     Route: 065

REACTIONS (8)
  - Acute kidney injury [Fatal]
  - Gastrointestinal haemorrhage [Fatal]
  - Coma [Fatal]
  - Metabolic acidosis [Fatal]
  - Hypoglycaemia [Fatal]
  - Anion gap [Fatal]
  - Toxicity to various agents [Fatal]
  - Hepatotoxicity [Fatal]
